FAERS Safety Report 18323795 (Version 1)
Quarter: 2020Q3

REPORT INFORMATION
  Report Type: Spontaneous
  Country: US (occurrence: US)
  Receive Date: 20200929
  Receipt Date: 20200929
  Transmission Date: 20201103
  Serious: Yes (Other)
  Sender: FDA-Public Use
  Company Number: US-BSC-202000142

PATIENT

DRUGS (1)
  1. VARITHENA [Suspect]
     Active Substance: POLIDOCANOL
     Indication: GREAT SAPHENOUS VEIN CLOSURE
     Route: 042
     Dates: start: 20200615

REACTIONS (1)
  - Peripheral vein occlusion [Unknown]

NARRATIVE: CASE EVENT DATE: 20200713
